FAERS Safety Report 12912865 (Version 1)
Quarter: 2016Q4

REPORT INFORMATION
  Report Type: Spontaneous
  Country: US (occurrence: US)
  Receive Date: 20161104
  Receipt Date: 20161104
  Transmission Date: 20170207
  Serious: Yes (Hospitalization, Other)
  Sender: FDA-Public Use
  Company Number: US-SAOL THERAPEUTICS-2016SAO00952

PATIENT
  Sex: Male

DRUGS (2)
  1. LIORESAL [Suspect]
     Active Substance: BACLOFEN
     Indication: MUSCLE SPASTICITY
  2. LIORESAL [Suspect]
     Active Substance: BACLOFEN
     Indication: QUADRIPLEGIA
     Dosage: 250 ?G, \DAY
     Route: 037
     Dates: start: 2001

REACTIONS (6)
  - Sedation [Unknown]
  - Impaired healing [Unknown]
  - Renal failure [Unknown]
  - Implant site infection [Unknown]
  - Drug withdrawal syndrome [Unknown]
  - Secretion discharge [Unknown]

NARRATIVE: CASE EVENT DATE: 2016
